FAERS Safety Report 16055383 (Version 1)
Quarter: 2019Q1

REPORT INFORMATION
  Report Type: Spontaneous
  Country: ES (occurrence: ES)
  Receive Date: 20190311
  Receipt Date: 20190311
  Transmission Date: 20190418
  Serious: Yes (Hospitalization)
  Sender: FDA-Public Use
  Company Number: ES-TEVA-2019-ES-1022037

PATIENT
  Age: 77 Year
  Sex: Female

DRUGS (4)
  1. EUTIROX  75 MICROGRAMOS COMPRIMIDOS [Concomitant]
     Active Substance: LEVOTHYROXINE SODIUM
  2. ENALAPRIL (2142A) [Concomitant]
     Active Substance: ENALAPRIL
  3. SPIRIVA 18 MICROGRAMOS POLVO PARA INHALACION [Concomitant]
  4. AMOXICILINA/ACIDO CLAVULANICO 875 MG/125 MG COMPRIMIDO [Suspect]
     Active Substance: AMOXICILLIN\CLAVULANATE POTASSIUM
     Indication: WOUND
     Dosage: 1 TABLET/8 HOURS
     Route: 048
     Dates: start: 20180401, end: 20180407

REACTIONS (4)
  - Choluria [Recovered/Resolved]
  - Jaundice [Recovered/Resolved]
  - Pruritus [Recovered/Resolved]
  - Rash [Recovered/Resolved]

NARRATIVE: CASE EVENT DATE: 20180409
